FAERS Safety Report 15808739 (Version 1)
Quarter: 2019Q1

REPORT INFORMATION
  Report Type: Spontaneous
  Country: US (occurrence: US)
  Receive Date: 20190110
  Receipt Date: 20190110
  Transmission Date: 20190417
  Serious: No
  Sender: FDA-Public Use
  Company Number: US-NOVOPROD-631697

PATIENT

DRUGS (2)
  1. FIASP [Suspect]
     Active Substance: INSULIN ASPART
     Dosage: PRE-BOLUS
     Route: 058
     Dates: start: 20180813, end: 201808
  2. FIASP [Suspect]
     Active Substance: INSULIN ASPART
     Indication: DIABETES MELLITUS
     Dosage: UNK
     Route: 058
     Dates: start: 20180813, end: 201808

REACTIONS (5)
  - Wrong technique in product usage process [Recovered/Resolved]
  - Infusion site pain [Unknown]
  - Infusion site mass [Unknown]
  - Infusion site infection [Unknown]
  - Blood glucose increased [Unknown]

NARRATIVE: CASE EVENT DATE: 201808
